FAERS Safety Report 17102522 (Version 1)
Quarter: 2019Q4

REPORT INFORMATION
  Report Type: Spontaneous
  Country: US (occurrence: US)
  Receive Date: 20191202
  Receipt Date: 20191202
  Transmission Date: 20200122
  Serious: Yes (Hospitalization, Other)
  Sender: FDA-Public Use
  Company Number: US-AMGEN-USASP2019198448

PATIENT

DRUGS (1)
  1. FILGRASTIM [Suspect]
     Active Substance: FILGRASTIM
     Indication: PERIPHERAL BLOOD STEM CELL APHERESIS
     Dosage: UNK UNK, QD FOR 4 TO 5 CONSECUTIVE DAYS
     Route: 058

REACTIONS (31)
  - Citrate toxicity [Unknown]
  - Malignant melanoma [Unknown]
  - Laryngeal squamous cell carcinoma [Unknown]
  - Renal cell carcinoma [Unknown]
  - Chronic lymphocytic leukaemia [Unknown]
  - Cervix carcinoma [Unknown]
  - Decreased appetite [Recovered/Resolved]
  - Thrombocytopenia [Unknown]
  - Headache [Recovered/Resolved]
  - Hypersensitivity [Unknown]
  - Testicular embryonal carcinoma [Unknown]
  - Influenza [Recovered/Resolved]
  - Myalgia [Recovered/Resolved]
  - Lung neoplasm malignant [Unknown]
  - Basal cell carcinoma [Unknown]
  - Vomiting [Recovered/Resolved]
  - Breast cancer [Unknown]
  - Prostate cancer [Unknown]
  - Malignant melanoma in situ [Unknown]
  - Oesophageal carcinoma [Unknown]
  - Bone pain [Unknown]
  - Fatigue [Recovered/Resolved]
  - Insomnia [Recovered/Resolved]
  - Back pain [Recovered/Resolved]
  - Sweating fever [Unknown]
  - Uterine cancer [Unknown]
  - Nausea [Recovered/Resolved]
  - Haemorrhage [Unknown]
  - Rash [Recovered/Resolved]
  - Viral infection [Unknown]
  - Chest pain [Recovered/Resolved]
